FAERS Safety Report 18097460 (Version 7)
Quarter: 2020Q4

REPORT INFORMATION
  Report Type: Report from Study
  Country: KR (occurrence: KR)
  Receive Date: 20200730
  Receipt Date: 20201123
  Transmission Date: 20210113
  Serious: Yes (Death, Hospitalization, Other)
  Sender: FDA-Public Use
  Company Number: KR-EXELIXIS-XL18420031537

PATIENT
  Age: 48 Year
  Sex: Male
  Weight: 81.5 kg

DRUGS (15)
  1. XL184 [Suspect]
     Active Substance: CABOZANTINIB
     Dosage: 20 MG, QD
     Route: 048
  2. LIVACT [Concomitant]
     Active Substance: AMINO ACIDS, SOURCE UNSPECIFIED
  3. CYCIN [Concomitant]
  4. BARACLUDE [Concomitant]
     Active Substance: ENTECAVIR
  5. GODEX [Concomitant]
  6. XL184 [Suspect]
     Active Substance: CABOZANTINIB
     Indication: HEPATOCELLULAR CARCINOMA
     Dosage: 60 MG, QD
     Route: 048
     Dates: start: 20191226
  7. THIAMINE. [Concomitant]
     Active Substance: THIAMINE
  8. NORZYME [Concomitant]
  9. FESTAL PLUS [Concomitant]
     Active Substance: DIMETHICONE\PANCRELIPASE\URSODIOL
  10. SPIRONOLACTONE. [Concomitant]
     Active Substance: SPIRONOLACTONE
  11. STOGAR [Concomitant]
     Active Substance: LAFUTIDINE
  12. URSA [Concomitant]
     Active Substance: URSODIOL
  13. NORMIX [Concomitant]
     Active Substance: RIFAXIMIN
  14. LASIX [Concomitant]
     Active Substance: FUROSEMIDE
  15. BANAN [Concomitant]
     Active Substance: CEFPODOXIME PROXETIL

REACTIONS (2)
  - Malignant neoplasm progression [Fatal]
  - Cholangitis [Not Recovered/Not Resolved]

NARRATIVE: CASE EVENT DATE: 20200723
